FAERS Safety Report 24453174 (Version 2)
Quarter: 2024Q4

REPORT INFORMATION
  Report Type: Report from Study
  Country: US (occurrence: US)
  Receive Date: 20241017
  Receipt Date: 20241018
  Transmission Date: 20250115
  Serious: No
  Sender: ROCHE
  Company Number: US-ROCHE-3187925

PATIENT
  Age: 78 Year
  Sex: Male

DRUGS (2)
  1. RITUXAN [Suspect]
     Active Substance: RITUXIMAB
     Indication: Chronic inflammatory demyelinating polyradiculoneuropathy
     Dosage: DATE OF SERVICE: 08/JAN/2024 AND 22/JAN/2024, DATE OF TREATMENT: 16/AUG/2023, 07/AUG/2023, 20/DEC/20
     Route: 041
     Dates: start: 20240108
  2. RITUXAN [Suspect]
     Active Substance: RITUXIMAB
     Route: 041
     Dates: start: 20240122

REACTIONS (2)
  - Off label use [Unknown]
  - No adverse event [Unknown]
